FAERS Safety Report 16305885 (Version 3)
Quarter: 2022Q3

REPORT INFORMATION
  Report Type: Spontaneous
  Country: DE (occurrence: DE)
  Receive Date: 20190513
  Receipt Date: 20220921
  Transmission Date: 20221027
  Serious: Yes (Hospitalization)
  Sender: FDA-Public Use
  Company Number: None

PATIENT
  Age: 80 Year
  Sex: Female
  Weight: 70 kg

DRUGS (9)
  1. METOPROLOL [Suspect]
     Active Substance: METOPROLOL
     Indication: Hypertension
     Dosage: 95 MILLIGRAM, BID
     Route: 048
  2. METOPROLOL [Suspect]
     Active Substance: METOPROLOL
     Dosage: 190 MILLIGRAM, UNK
     Route: 065
     Dates: start: 2008
  3. SPIRONOLACTONE [Suspect]
     Active Substance: SPIRONOLACTONE
     Indication: Hypertension
     Dosage: 50 MILLIGRAM, QD
     Route: 048
     Dates: end: 20180825
  4. MOXONIDINE [Suspect]
     Active Substance: MOXONIDINE
     Indication: Hypertension
     Dosage: 0.4 MILLIGRAM, BID
     Route: 048
     Dates: start: 20080730
  5. FELODIPINE [Suspect]
     Active Substance: FELODIPINE
     Indication: Hypertension
     Dosage: 1 DOSAGE FORM, BID
     Route: 048
     Dates: start: 20080730
  6. FERROUS SULFATE [Concomitant]
     Active Substance: FERROUS SULFATE
     Indication: Iron deficiency anaemia
     Dosage: UNK, UNK
     Route: 065
  7. PANTOPRAZOLE [Concomitant]
     Active Substance: PANTOPRAZOLE
     Indication: Gastrooesophageal reflux disease
     Dosage: 40 MILLIGRAM, QD
     Route: 048
  8. FERRO-SANOL DUODENAL [Concomitant]
     Active Substance: FERROUS GLYCINE SULFATE
     Indication: Iron deficiency anaemia
     Dosage: 1 DOSAGE FORM, QD
     Route: 048
  9. DIGITOXIN [Concomitant]
     Active Substance: DIGITOXIN
     Indication: Cardiac failure
     Dosage: 0.07 MILLIGRAM, QD
     Route: 048

REACTIONS (8)
  - Hyponatraemia [Recovering/Resolving]
  - Hyperkalaemia [Recovered/Resolved]
  - Blood pressure systolic decreased [Recovered/Resolved]
  - Listless [Unknown]
  - Asthenia [Unknown]
  - Heart rate decreased [Recovered/Resolved]
  - Nausea [Recovered/Resolved]
  - Syncope [Recovered/Resolved]

NARRATIVE: CASE EVENT DATE: 20080101
